FAERS Safety Report 23669307 (Version 1)
Quarter: 2024Q1

REPORT INFORMATION
  Report Type: Spontaneous
  Country: US (occurrence: None)
  Receive Date: 20240324
  Receipt Date: 20240324
  Transmission Date: 20240409
  Serious: Yes (Other)
  Sender: FDA-Public Use
  Company Number: None

PATIENT
  Age: 54 Year
  Sex: Female
  Weight: 76.5 kg

DRUGS (1)
  1. RYBELSUS [Suspect]
     Active Substance: SEMAGLUTIDE
     Indication: Type 2 diabetes mellitus
     Route: 048
     Dates: start: 20231221, end: 20240323

REACTIONS (13)
  - Nausea [None]
  - Abdominal discomfort [None]
  - Diarrhoea [None]
  - Diarrhoea [None]
  - Hypotension [None]
  - Chills [None]
  - Dizziness [None]
  - Malaise [None]
  - Malnutrition [None]
  - Depression [None]
  - Anxiety [None]
  - Quality of life decreased [None]
  - Impaired work ability [None]

NARRATIVE: CASE EVENT DATE: 20240322
